FAERS Safety Report 22060857 (Version 5)
Quarter: 2023Q2

REPORT INFORMATION
  Report Type: Report from Study
  Country: MY (occurrence: MY)
  Receive Date: 20230303
  Receipt Date: 20230630
  Transmission Date: 20230721
  Serious: Yes (Hospitalization)
  Sender: FDA-Public Use
  Company Number: MY-JNJFOC-20230259809

PATIENT
  Age: 74 Year
  Sex: Female
  Weight: 44 kg

DRUGS (44)
  1. AMIVANTAMAB [Suspect]
     Active Substance: AMIVANTAMAB
     Indication: Non-small cell lung cancer
     Dosage: FORM ALSO REPORTED AS 25R VIAL
     Route: 058
     Dates: start: 20230104, end: 20230131
  2. AMLODIPINE [Concomitant]
     Active Substance: AMLODIPINE BESYLATE
     Indication: Hypertension
     Route: 048
     Dates: start: 2007
  3. GLICLAZIDE [Concomitant]
     Active Substance: GLICLAZIDE
     Indication: Diabetes mellitus
     Route: 048
     Dates: start: 2007
  4. METFORMIN [Concomitant]
     Active Substance: METFORMIN HYDROCHLORIDE
     Indication: Diabetes mellitus
     Route: 048
     Dates: start: 2007
  5. ACETAMINOPHEN [Concomitant]
     Active Substance: ACETAMINOPHEN
     Indication: Bone pain
     Route: 048
     Dates: start: 20221017
  6. ACETAMINOPHEN [Concomitant]
     Active Substance: ACETAMINOPHEN
     Indication: Back pain
  7. VITAMIN B COMPLEX [Concomitant]
     Active Substance: CYANOCOBALAMIN\DEXPANTHENOL\NIACINAMIDE\PYRIDOXINE HYDROCHLORIDE\RIBOFLAVIN 5^-PHOSPHATE SODIUM\THIA
     Indication: Diabetes mellitus
     Route: 048
     Dates: start: 20221105
  8. AQUEOUS [EMULSIFYING WAX;PARAFFIN, LIQUID;WHITE SOFT PARAFFIN] [Concomitant]
     Indication: Pruritus
     Dosage: DOSE 1 (DOSAGE UNIT NOT PROVIDED)
     Route: 061
     Dates: start: 20221219
  9. LORATADINE [Concomitant]
     Active Substance: LORATADINE
     Indication: Pruritus
     Route: 048
     Dates: start: 20221219
  10. LORATADINE [Concomitant]
     Active Substance: LORATADINE
     Indication: Dermatitis acneiform
     Route: 048
     Dates: start: 20230106, end: 20230131
  11. LORATADINE [Concomitant]
     Active Substance: LORATADINE
     Indication: Rash macular
     Route: 048
     Dates: start: 20230213
  12. LORATADINE [Concomitant]
     Active Substance: LORATADINE
     Indication: Vasculitis
  13. LACTULOSE [Concomitant]
     Active Substance: LACTULOSE
     Indication: Prophylaxis
     Route: 048
     Dates: start: 20230104
  14. BETAMETHASONE [Concomitant]
     Active Substance: BETAMETHASONE
     Indication: Rash macular
     Route: 061
     Dates: start: 20230106, end: 20230219
  15. BETAMETHASONE [Concomitant]
     Active Substance: BETAMETHASONE
     Indication: Dermatitis acneiform
     Route: 061
     Dates: start: 20230224
  16. BETAMETHASONE [Concomitant]
     Active Substance: BETAMETHASONE
     Indication: Vasculitis
  17. BETAMETHASONE [Concomitant]
     Active Substance: BETAMETHASONE
     Indication: Vasculitic rash
  18. SALT [Concomitant]
     Active Substance: SODIUM CHLORIDE
     Indication: Diarrhoea
     Route: 048
     Dates: start: 20230106
  19. LOPERAMIDE [Concomitant]
     Active Substance: LOPERAMIDE
     Indication: Diarrhoea
     Route: 048
     Dates: start: 20230117
  20. TRIAMCINOLONE ACETONIDE [Concomitant]
     Active Substance: TRIAMCINOLONE ACETONIDE
     Indication: Mouth ulceration
     Dosage: DOSE: 1 (DOSAGE UNIT NOT PROVIDED)
     Route: 061
     Dates: start: 20230125
  21. DEXAMETHASONE [Concomitant]
     Active Substance: DEXAMETHASONE
     Indication: Mouth ulceration
     Route: 048
     Dates: start: 20230116
  22. DEXAMETHASONE [Concomitant]
     Active Substance: DEXAMETHASONE
     Route: 048
     Dates: start: 20230125, end: 20230215
  23. DEXAMETHASONE [Concomitant]
     Active Substance: DEXAMETHASONE
     Route: 048
     Dates: start: 20230216
  24. MAGNESIUM OXIDE [Concomitant]
     Active Substance: MAGNESIUM OXIDE
     Indication: Hypomagnesaemia
     Route: 048
     Dates: start: 20230125, end: 20230130
  25. MAGNESIUM OXIDE [Concomitant]
     Active Substance: MAGNESIUM OXIDE
     Indication: Mineral supplementation
     Route: 048
     Dates: start: 20230130
  26. GENTAMICIN [Concomitant]
     Active Substance: GENTAMICIN
     Indication: Paronychia
     Dosage: DOSE 1 (DOSAGE UNIT NOT PROVIDED)
     Route: 061
     Dates: start: 20230131
  27. SODIUM CHLORIDE [Concomitant]
     Active Substance: SODIUM CHLORIDE
     Indication: Hyponatraemia
     Route: 048
     Dates: start: 20230131
  28. POTASSIUM CHLORIDE [Concomitant]
     Active Substance: POTASSIUM CHLORIDE
     Indication: Hypokalaemia
     Route: 048
     Dates: start: 20230125, end: 20230131
  29. POTASSIUM CHLORIDE [Concomitant]
     Active Substance: POTASSIUM CHLORIDE
     Route: 048
     Dates: start: 20230131, end: 20230223
  30. FUSIDIC ACID [Concomitant]
     Active Substance: FUSIDIC ACID
     Indication: Dermatitis acneiform
     Dosage: DOSE 1 (DOSAGE UNIT NOT PROVIDED)
     Route: 061
     Dates: start: 20230202
  31. ZINCOFER [ASCORBIC ACID;CYANOCOBALAMIN;FERROUS FUMARATE;FOLIC ACID;PYR [Concomitant]
     Indication: Anaemia
     Route: 048
     Dates: start: 20230202
  32. GABAPENTIN [Concomitant]
     Active Substance: GABAPENTIN
     Indication: Hypoaesthesia
     Route: 048
     Dates: start: 20230112
  33. GABAPENTIN [Concomitant]
     Active Substance: GABAPENTIN
     Route: 048
     Dates: start: 20230117, end: 20230131
  34. GABAPENTIN [Concomitant]
     Active Substance: GABAPENTIN
     Route: 048
     Dates: start: 20230202, end: 20230224
  35. GABAPENTIN [Concomitant]
     Active Substance: GABAPENTIN
     Route: 048
     Dates: start: 20230224
  36. CALAMINE;SULFUR [Concomitant]
     Indication: Dermatitis acneiform
     Dosage: DOSE 1 (DOSAGE UNITS NOT PROVIDED)
     Route: 061
     Dates: start: 20230213
  37. CALAMINE;SULFUR [Concomitant]
     Indication: Vasculitis
  38. DOXYCYCLINE [Concomitant]
     Active Substance: DOXYCYCLINE
     Indication: Dermatitis acneiform
     Route: 048
     Dates: start: 20230213
  39. DOXYCYCLINE [Concomitant]
     Active Substance: DOXYCYCLINE
     Indication: Vasculitis
  40. MORPHINE [Concomitant]
     Active Substance: MORPHINE
     Indication: Bone pain
     Route: 048
     Dates: start: 20230104, end: 20230131
  41. MORPHINE [Concomitant]
     Active Substance: MORPHINE
     Indication: Back pain
     Route: 048
     Dates: start: 20230216
  42. CHLORAMPHENICOL [Concomitant]
     Active Substance: CHLORAMPHENICOL
     Indication: Conjunctivitis
     Route: 047
     Dates: start: 20230125, end: 20230127
  43. FUROSEMIDE [Concomitant]
     Active Substance: FUROSEMIDE
     Indication: Oedema peripheral
     Route: 048
     Dates: start: 20230202, end: 20230224
  44. MORPHINE [Concomitant]
     Active Substance: MORPHINE
     Indication: Back pain
     Route: 048
     Dates: start: 20230216

REACTIONS (5)
  - Deep vein thrombosis [Not Recovered/Not Resolved]
  - Deep vein thrombosis [Not Recovered/Not Resolved]
  - Dermatitis acneiform [Not Recovered/Not Resolved]
  - Vasculitis [Not Recovered/Not Resolved]
  - Vasculitic rash [Not Recovered/Not Resolved]

NARRATIVE: CASE EVENT DATE: 20230202
